FAERS Safety Report 14449518 (Version 1)
Quarter: 2018Q1

REPORT INFORMATION
  Report Type: Spontaneous
  Country: GB (occurrence: GB)
  Receive Date: 20180127
  Receipt Date: 20180127
  Transmission Date: 20180509
  Serious: Yes (Other)
  Sender: FDA-Public Use
  Company Number: GB-CONCORDIA PHARMACEUTICALS INC.-E2B_00009579

PATIENT
  Age: 76 Year
  Sex: Female

DRUGS (4)
  1. VALSARTAN. [Concomitant]
     Active Substance: VALSARTAN
  2. DIGOXIN. [Suspect]
     Active Substance: DIGOXIN
     Indication: TACHYCARDIA
     Route: 048
     Dates: start: 20171219, end: 20171227
  3. NIFEDIPINE. [Concomitant]
     Active Substance: NIFEDIPINE
  4. PHENYTOIN SODIUM. [Concomitant]
     Active Substance: PHENYTOIN SODIUM

REACTIONS (12)
  - Asthenia [Recovered/Resolved]
  - Nervousness [Recovered/Resolved]
  - Fatigue [Recovered/Resolved]
  - Decreased appetite [Recovered/Resolved]
  - Confusional state [Recovered/Resolved]
  - Restlessness [Recovered/Resolved]
  - Somnolence [Recovered/Resolved]
  - Depression [Recovered/Resolved]
  - Memory impairment [Recovered/Resolved]
  - Disorientation [Recovered/Resolved]
  - Agitation [Recovered/Resolved]
  - Psychotic disorder [Recovered/Resolved]

NARRATIVE: CASE EVENT DATE: 20171223
